FAERS Safety Report 13935794 (Version 2)
Quarter: 2017Q3

REPORT INFORMATION
  Report Type: Spontaneous
  Country: JP (occurrence: JP)
  Receive Date: 20170905
  Receipt Date: 20170925
  Transmission Date: 20171127
  Serious: Yes (Hospitalization)
  Sender: FDA-Public Use
  Company Number: JP-JNJFOC-20170902785

PATIENT
  Age: 8 Decade
  Sex: Female
  Weight: 55 kg

DRUGS (2)
  1. CANAGLU [Suspect]
     Active Substance: CANAGLIFLOZIN
     Indication: TYPE 2 DIABETES MELLITUS
     Route: 048
     Dates: start: 20150705, end: 20170731
  2. ADALAT [Concomitant]
     Active Substance: NIFEDIPINE
     Dosage: BEFORE 2009
     Route: 048

REACTIONS (1)
  - Atrioventricular block complete [Recovering/Resolving]

NARRATIVE: CASE EVENT DATE: 20170705
